FAERS Safety Report 4720715-5 (Version None)
Quarter: 2005Q3

REPORT INFORMATION
  Report Type: 
  Country: None (occurrence: None)
  Receive Date: 20050721
  Receipt Date: 20050713
  Transmission Date: 20060218
  Serious: Yes (Hospitalization)
  Sender: FDA-Public Use
  Company Number: FRPFM-S-20050219

PATIENT
  Age: 70 Year
  Sex: Male

DRUGS (1)
  1. NAVELBINE [Suspect]
     Indication: NON-SMALL CELL LUNG CANCER
     Route: 042
     Dates: start: 20050704, end: 20050704

REACTIONS (3)
  - EXTRAVASATION [None]
  - LOCALISED OEDEMA [None]
  - SHOULDER PAIN [None]
